FAERS Safety Report 8990271 (Version 1)
Quarter: 2012Q4

REPORT INFORMATION
  Report Type: 
  Country: AU (occurrence: AU)
  Receive Date: 20121228
  Receipt Date: 20121228
  Transmission Date: 20130627
  Serious: Yes (Hospitalization)
  Sender: FDA-Public Use
  Company Number: AU-NOVOPROD-367784

PATIENT

DRUGS (1)
  1. NOVORAPID FLEXPEN [Suspect]
     Indication: GESTATIONAL DIABETES
     Dosage: unk
     Route: 064
     Dates: end: 20121115

REACTIONS (2)
  - Diabetic ketoacidosis [Unknown]
  - Foetal exposure during pregnancy [Recovered/Resolved]
